FAERS Safety Report 25851431 (Version 1)
Quarter: 2025Q3

REPORT INFORMATION
  Report Type: Spontaneous
  Country: US (occurrence: None)
  Receive Date: 20250925
  Receipt Date: 20250925
  Transmission Date: 20251020
  Serious: No
  Sender: FDA-CTU
  Company Number: None

PATIENT
  Sex: Female

DRUGS (1)
  1. ATOVAQUONE [Suspect]
     Active Substance: ATOVAQUONE

REACTIONS (4)
  - Drug hypersensitivity [None]
  - Haemophagocytic lymphohistiocytosis [None]
  - Still^s disease [None]
  - Liver injury [None]
